FAERS Safety Report 8868604 (Version 1)
Quarter: 2012Q4

REPORT INFORMATION
  Report Type: 
  Country: US (occurrence: US)
  Receive Date: 20121026
  Receipt Date: 20121026
  Transmission Date: 20130627
  Serious: No
  Sender: FDA-Public Use
  Company Number: US-AMGEN-USASP2012046236

PATIENT
  Age: 44 Year
  Sex: Female
  Weight: 64.85 kg

DRUGS (4)
  1. ENBREL [Suspect]
     Indication: PSORIATIC ARTHROPATHY
     Dosage: 50 mg, qwk
     Route: 058
  2. TOPROL [Concomitant]
     Dosage: 25 mg, UNK
  3. MULTIVITAMIN                       /00097801/ [Concomitant]
     Dosage: UNK
  4. DICLOFENAC [Concomitant]
     Dosage: 25 mg, UNK

REACTIONS (1)
  - Psoriatic arthropathy [Unknown]
